FAERS Safety Report 8171425 (Version 5)
Quarter: 2013Q1

REPORT INFORMATION
  Report Type: Spontaneous
  Country: NO (occurrence: NO)
  Receive Date: 20111006
  Receipt Date: 20130115
  Transmission Date: 20140127
  Serious: Yes (Hospitalization, Disabling)
  Sender: FDA-Public Use
  Company Number: NO-PFIZER INC-2011233298

PATIENT
  Age: 20 Year
  Sex: Female
  Weight: 43 kg

DRUGS (3)
  1. DEPO-PROVERA [Suspect]
     Indication: POLYCYSTIC OVARIES
     Dosage: 1 DF, ONLY ONE DOSE TAKEN
     Dates: start: 200005, end: 2000
  2. DIANE [Suspect]
     Indication: HIRSUTISM
     Dosage: UNK
     Route: 048
     Dates: start: 200009, end: 2001
  3. DIANE [Suspect]
     Indication: ACNE

REACTIONS (24)
  - Major depression [Unknown]
  - Psychotic disorder [Unknown]
  - Anorexia nervosa [Unknown]
  - Catatonia [Unknown]
  - Autism [Unknown]
  - Hallucination [Unknown]
  - Nightmare [Unknown]
  - Hyperhidrosis [Unknown]
  - Visual impairment [Unknown]
  - Fatigue [Unknown]
  - Apathy [Unknown]
  - Asthenia [Unknown]
  - Sleep disorder [Unknown]
  - Coordination abnormal [Unknown]
  - Headache [Unknown]
  - Paraesthesia [Unknown]
  - Erythema [Unknown]
  - Decreased appetite [Unknown]
  - Anxiety [Unknown]
  - Dyspnoea [Unknown]
  - Hirsutism [Not Recovered/Not Resolved]
  - Disturbance in attention [Unknown]
  - Acne [Unknown]
  - Off label use [Recovered/Resolved]
